FAERS Safety Report 9267829 (Version 2)
Quarter: 2013Q2

REPORT INFORMATION
  Report Type: Spontaneous
  Country: US (occurrence: US)
  Receive Date: 20130502
  Receipt Date: 20130618
  Transmission Date: 20140414
  Serious: Yes (Other)
  Sender: FDA-Public Use
  Company Number: US-PURDUE-USA-2013-0101681

PATIENT
  Age: 75 Year
  Sex: Female

DRUGS (2)
  1. BUTRANS [Suspect]
     Indication: PAIN
     Dosage: 10 MCG/HR, WEEKLY
     Route: 062
     Dates: start: 20121212, end: 20130425
  2. PERCOCET /00867901/ [Suspect]
     Indication: PAIN
     Dosage: 1 TABLET, 10/325 MG 3-4 TIMES A DAY
     Route: 048
     Dates: start: 201212

REACTIONS (2)
  - Intervertebral disc disorder [Not Recovered/Not Resolved]
  - Drug ineffective [Recovered/Resolved]
